FAERS Safety Report 7460720-1 (Version None)
Quarter: 2011Q2

REPORT INFORMATION
  Report Type: 
  Country: None (occurrence: None)
  Receive Date: 20110505
  Receipt Date: 20110503
  Transmission Date: 20111010
  Serious: Yes (Life-Threatening, Hospitalization)
  Sender: FDA-Public Use
  Company Number: ES-EISAI INC-E2090-01594-SPO-ES

PATIENT
  Age: 60 Year
  Sex: Male

DRUGS (13)
  1. ZONEGRAN [Suspect]
     Indication: IMPULSE-CONTROL DISORDER
     Route: 048
     Dates: start: 20100605, end: 20100623
  2. SPIRIVA [Concomitant]
  3. SIMVASTATIN [Concomitant]
  4. DIAZEPAM [Concomitant]
  5. SERETIDE [Concomitant]
  6. METFORMINE [Concomitant]
  7. MIRTAZAPINE [Concomitant]
  8. QUINAPRIL [Concomitant]
  9. LORAZEPAM [Concomitant]
  10. VENLAFAXINE [Concomitant]
  11. OMEPRAZOLE [Concomitant]
  12. PARACETAMOL [Concomitant]
  13. INSULIN [Concomitant]

REACTIONS (1)
  - AGRANULOCYTOSIS [None]
